FAERS Safety Report 11837682 (Version 1)
Quarter: 2015Q4

REPORT INFORMATION
  Report Type: Spontaneous
  Country: CZ (occurrence: CZ)
  Receive Date: 20151215
  Receipt Date: 20151215
  Transmission Date: 20160305
  Serious: Yes (Other)
  Sender: FDA-Public Use
  Company Number: CZ-JNJFOC-20151207673

PATIENT
  Sex: Female

DRUGS (1)
  1. INFLIXIMAB, RECOMBINANT [Suspect]
     Active Substance: INFLIXIMAB
     Indication: JUVENILE IDIOPATHIC ARTHRITIS
     Route: 042

REACTIONS (4)
  - Off label use [Unknown]
  - Product use issue [Unknown]
  - Exposure during pregnancy [Recovered/Resolved]
  - Abortion spontaneous [Unknown]
